FAERS Safety Report 10383707 (Version 1)
Quarter: 2014Q1

REPORT INFORMATION
  Report Type: Spontaneous
  Country: US (occurrence: None)
  Receive Date: 20140306
  Receipt Date: 20140306
  Transmission Date: 20141002
  Serious: Yes (Other)
  Sender: FDA-Public Use
  Company Number: 163-21880-13072286

PATIENT
  Age: 61 Year
  Sex: Female
  Weight: 61.2 kg

DRUGS (7)
  1. REVLIMID (LENALIDOMIDE) (10 MILLIGRAM, CAPSULES) [Suspect]
     Indication: PLASMA CELL MYELOMA
     Route: 048
     Dates: start: 201109
  2. AMBIEN (ZOLPIDEM TARTRATE) (TABLETS) [Concomitant]
  3. ZOFRAN (ONDANSETRON HYDROCHLORIDE) (TABLETS) [Concomitant]
  4. TYLENOL (PARACETAMOL) (TABLETS) [Concomitant]
  5. COLACE (SOCUSATE SODIUM) (CAPSULES) [Concomitant]
  6. VITAMIN D3 (COLECALCIFEROL) [Concomitant]
  7. ASPIRIN (ACETYLSALICYLIC ACID) (ENTERIC-COATED TABLET) [Concomitant]

REACTIONS (2)
  - Petechiae [None]
  - Diarrhoea [None]
